FAERS Safety Report 24441524 (Version 2)
Quarter: 2024Q4

REPORT INFORMATION
  Report Type: Spontaneous
  Country: AU (occurrence: AU)
  Receive Date: 20241016
  Receipt Date: 20241017
  Transmission Date: 20250114
  Serious: No
  Sender: ROCHE
  Company Number: AU-ROCHE-3494487

PATIENT

DRUGS (4)
  1. HEMLIBRA [Suspect]
     Active Substance: EMICIZUMAB-KXWH
     Indication: Product used for unknown indication
     Dosage: 105MG/0.7ML
     Route: 065
  2. PULMOZYME [Suspect]
     Active Substance: DORNASE ALFA
     Indication: Product used for unknown indication
     Dosage: 2.5MG/2.5ML
     Route: 065
  3. PULMOZYME [Suspect]
     Active Substance: DORNASE ALFA
     Route: 065
  4. PULMOZYME [Suspect]
     Active Substance: DORNASE ALFA
     Route: 065

REACTIONS (2)
  - Intercepted product storage error [Unknown]
  - No adverse event [Unknown]

NARRATIVE: CASE EVENT DATE: 20240115
